FAERS Safety Report 15269379 (Version 1)
Quarter: 2018Q3

REPORT INFORMATION
  Report Type: Spontaneous
  Country: CA (occurrence: CA)
  Receive Date: 20180813
  Receipt Date: 20180813
  Transmission Date: 20181010
  Serious: Yes (Other)
  Sender: FDA-Public Use
  Company Number: CA-ORION CORPORATION ORION PHARMA-TREX2017-1094

PATIENT
  Age: 70 Year
  Sex: Female
  Weight: 99.3 kg

DRUGS (12)
  1. INFLECTRA [Suspect]
     Active Substance: INFLIXIMAB-DYYB
     Indication: RHEUMATOID ARTHRITIS
     Dosage: CYCLIC EVERY 0,2, 6 WEEKS, THEN EVERY 8 WEEKS FOR 1 MONTH
     Route: 042
     Dates: start: 20170228
  2. NEXIUM [Concomitant]
     Active Substance: ESOMEPRAZOLE MAGNESIUM
     Route: 065
  3. SALBUTAMOL HFA [Concomitant]
     Active Substance: ALBUTEROL
     Route: 065
  4. INFLECTRA [Suspect]
     Active Substance: INFLIXIMAB-DYYB
     Dosage: CYCLIC
     Route: 041
     Dates: start: 20180622
  5. COVERSYL [Concomitant]
     Active Substance: PERINDOPRIL
     Route: 065
  6. L?THYROXINE [Concomitant]
     Active Substance: LEVOTHYROXINE
     Route: 065
  7. ALENDRONATE [Concomitant]
     Active Substance: ALENDRONATE SODIUM
     Route: 065
  8. METHOTREXATE (TRADE NAME UNKNOWN) [Suspect]
     Active Substance: METHOTREXATE
     Indication: PRODUCT USED FOR UNKNOWN INDICATION
     Route: 065
  9. INFLECTRA [Suspect]
     Active Substance: INFLIXIMAB-DYYB
     Dosage: CYCLIC
     Route: 042
  10. INFLECTRA [Suspect]
     Active Substance: INFLIXIMAB-DYYB
     Dosage: CYCLIC EVERY 4 WEEKS (FOR 2 INFUSIONS), THEN EVERY 8 WEEKS
     Route: 042
  11. FOLIC ACID. [Concomitant]
     Active Substance: FOLIC ACID
     Route: 065
  12. PREDNISONE. [Concomitant]
     Active Substance: PREDNISONE
     Route: 065

REACTIONS (7)
  - Cystitis [Recovered/Resolved]
  - Blood pressure fluctuation [Unknown]
  - Urinary tract infection [Recovered/Resolved]
  - Cataract [Unknown]
  - Back pain [Unknown]
  - Constipation [Unknown]
  - Abdominal pain [Unknown]

NARRATIVE: CASE EVENT DATE: 201805
